FAERS Safety Report 22142549 (Version 1)
Quarter: 2023Q1

REPORT INFORMATION
  Report Type: Spontaneous
  Country: US (occurrence: None)
  Receive Date: 20230324
  Receipt Date: 20230324
  Transmission Date: 20230418
  Serious: Yes (Death)
  Sender: FDA-Public Use
  Company Number: None

PATIENT
  Age: 27 Year
  Sex: Male

DRUGS (4)
  1. TACROLIMUS [Suspect]
     Active Substance: TACROLIMUS
     Indication: Lung transplant
     Dosage: FREQUENCY : DAILY;?
     Route: 048
     Dates: start: 20211101, end: 20230213
  2. MYCOPHENOLIC ACID [Suspect]
     Active Substance: MYCOPHENOLIC ACID
     Indication: Lung transplant
     Dosage: OTHER FREQUENCY : TWICE;?
     Route: 048
     Dates: start: 20211011, end: 20230213
  3. MULTIVTAMIN ADULTS TABLETS [Concomitant]
  4. VITAMIN D3 CAPSULES [Concomitant]

REACTIONS (3)
  - Complications of transplanted lung [None]
  - Organ failure [None]
  - Pneumonia [None]

NARRATIVE: CASE EVENT DATE: 20230213
